FAERS Safety Report 13097751 (Version 1)
Quarter: 2017Q1

REPORT INFORMATION
  Report Type: Spontaneous
  Country: US (occurrence: US)
  Receive Date: 20170109
  Receipt Date: 20170109
  Transmission Date: 20170428
  Serious: No
  Sender: FDA-Public Use
  Company Number: None

PATIENT
  Age: 35 Year
  Sex: Female

DRUGS (3)
  1. RASUVO [Suspect]
     Active Substance: METHOTREXATE SODIUM
     Indication: NEUROPATHY PERIPHERAL
  2. RASUVO [Suspect]
     Active Substance: METHOTREXATE SODIUM
     Indication: ARTERITIS
  3. RASUVO [Suspect]
     Active Substance: METHOTREXATE SODIUM
     Indication: CROHN^S DISEASE

REACTIONS (2)
  - Rash [None]
  - Skin fissures [None]

NARRATIVE: CASE EVENT DATE: 20160109
